FAERS Safety Report 6285020-7 (Version None)
Quarter: 2009Q3

REPORT INFORMATION
  Report Type: 
  Country: None (occurrence: None)
  Receive Date: 20090727
  Receipt Date: 20090423
  Transmission Date: 20100115
  Serious: No
  Sender: FDA-Public Use
  Company Number: US-ABBOTT-09P-163-0569936-00

PATIENT
  Sex: Male
  Weight: 68.1 kg

DRUGS (6)
  1. NORVIR [Suspect]
     Indication: HIV INFECTION
     Route: 048
     Dates: start: 20081001, end: 20081201
  2. NORVIR [Suspect]
     Route: 048
     Dates: start: 20081201, end: 20090423
  3. ADVAIR HFA [Concomitant]
     Indication: ASTHMA
     Route: 055
  4. ALBUTEROL [Concomitant]
     Indication: ASTHMA
     Route: 055
  5. LEXIVA [Concomitant]
     Indication: HIV INFECTION
     Dosage: BID
     Route: 048
  6. TRUVADA [Concomitant]
     Indication: HIV INFECTION
     Dosage: 200/300MG
     Route: 048

REACTIONS (9)
  - ABDOMINAL PAIN [None]
  - AMNESIA [None]
  - CHRONIC OBSTRUCTIVE PULMONARY DISEASE [None]
  - DIARRHOEA [None]
  - HYPOAESTHESIA [None]
  - IMPATIENCE [None]
  - NIGHT SWEATS [None]
  - VOMITING [None]
  - WEIGHT DECREASED [None]
